FAERS Safety Report 23585994 (Version 1)
Quarter: 2024Q1

REPORT INFORMATION
  Report Type: Report from Study
  Country: DO (occurrence: DO)
  Receive Date: 20240301
  Receipt Date: 20240301
  Transmission Date: 20240410
  Serious: Yes (Hospitalization)
  Sender: FDA-Public Use
  Company Number: DO-JNJFOC-20240273616

PATIENT
  Sex: Female
  Weight: 49 kg

DRUGS (2)
  1. BORTEZOMIB [Suspect]
     Active Substance: BORTEZOMIB
     Indication: Plasma cell myeloma refractory
     Dosage: UNK
     Route: 065
  2. DARZALEX [Suspect]
     Active Substance: DARATUMUMAB
     Indication: Plasma cell myeloma refractory
     Dosage: 16 MILLIGRAM/KILOGRAM, Q3WEEKS
     Route: 042
     Dates: start: 20230523, end: 202312

REACTIONS (4)
  - Diarrhoea [Unknown]
  - Blood pressure decreased [Unknown]
  - Amoebiasis [Unknown]
  - Influenza [Unknown]
